FAERS Safety Report 13779317 (Version 2)
Quarter: 2022Q1

REPORT INFORMATION
  Report Type: Spontaneous
  Country: US (occurrence: US)
  Receive Date: 20170721
  Receipt Date: 20220110
  Transmission Date: 20220423
  Serious: Yes (Hospitalization, Other)
  Sender: FDA-Public Use
  Company Number: US-CIPLA LTD.-2017US12297

PATIENT

DRUGS (4)
  1. VALACYCLOVIR [Suspect]
     Active Substance: VALACYCLOVIR HYDROCHLORIDE
     Indication: Herpes zoster
     Dosage: 1 GRAM, TID
     Route: 065
  2. ACYCLOVIR [Suspect]
     Active Substance: ACYCLOVIR
     Indication: Encephalitis viral
     Dosage: 5 MILLIGRAM/KILOGRAM, QD
     Route: 065
  3. CEFTRIAXONE [Concomitant]
     Active Substance: CEFTRIAXONE
     Indication: Encephalitis viral
     Dosage: UNK
     Route: 065
  4. AMPICILLIN [Concomitant]
     Active Substance: AMPICILLIN
     Indication: Encephalitis viral
     Dosage: UNK
     Route: 065

REACTIONS (5)
  - Neurotoxicity [Recovered/Resolved]
  - Pneumonia [Recovered/Resolved]
  - Extra dose administered [Unknown]
  - Drug dose titration not performed [Unknown]
  - Toxic encephalopathy [Recovered/Resolved]
